FAERS Safety Report 7180180-8 (Version None)
Quarter: 2010Q4

REPORT INFORMATION
  Report Type: 
  Country: None (occurrence: None)
  Receive Date: 20101209
  Receipt Date: 20101123
  Transmission Date: 20110411
  Serious: Yes (Other)
  Sender: FDA-Public Use
  Company Number: ALA_00448_2010

PATIENT
  Sex: Female

DRUGS (3)
  1. PREFERAOB + DHA (ALAVEN PHARMACEUTICAL LLC) [Suspect]
     Indication: PRENATAL CARE
     Dosage: 1 TABLET AND 1 CAPSULE BY MOUTH DAILY ORAL
     Route: 048
  2. CELEXA [Concomitant]
  3. TRAZODONE [Concomitant]

REACTIONS (8)
  - ANTEPARTUM HAEMORRHAGE [None]
  - DRUG EXPOSURE DURING PREGNANCY [None]
  - HAEMATOCRIT DECREASED [None]
  - HAEMOGLOBIN DECREASED [None]
  - MUSCLE SPASMS [None]
  - NEUTROPHIL PERCENTAGE INCREASED [None]
  - RED BLOOD CELL COUNT DECREASED [None]
  - WHITE BLOOD CELL COUNT INCREASED [None]
